FAERS Safety Report 14271080 (Version 1)
Quarter: 2017Q4

REPORT INFORMATION
  Report Type: Spontaneous
  Country: ZA (occurrence: ZA)
  Receive Date: 20171211
  Receipt Date: 20171211
  Transmission Date: 20180321
  Serious: Yes (Other)
  Sender: FDA-Public Use
  Company Number: ZA-SA-2017SA241954

PATIENT
  Age: 42 Year
  Sex: Male

DRUGS (4)
  1. CHLOROQUINE. [Suspect]
     Active Substance: CHLOROQUINE
     Route: 065
     Dates: start: 2012
  2. ARAVA [Suspect]
     Active Substance: LEFLUNOMIDE
     Route: 048
     Dates: start: 2012, end: 201303
  3. MTCN (METHOTREXATE) [Suspect]
     Active Substance: METHOTREXATE
     Route: 065
     Dates: start: 2012, end: 201303
  4. METHOTREXATE. [Suspect]
     Active Substance: METHOTREXATE
     Route: 065
     Dates: start: 2012

REACTIONS (5)
  - Rheumatic fever [Unknown]
  - Carditis [Unknown]
  - Depression [Unknown]
  - Renal impairment [Unknown]
  - Drug effect incomplete [Unknown]

NARRATIVE: CASE EVENT DATE: 20120119
